FAERS Safety Report 8733337 (Version 2)
Quarter: 2013Q4

REPORT INFORMATION
  Report Type: Report from Study
  Country: US (occurrence: US)
  Receive Date: 20120821
  Receipt Date: 20131108
  Transmission Date: 20140711
  Serious: Yes (Other)
  Sender: FDA-Public Use
  Company Number: US-009507513-1208USA006763

PATIENT
  Sex: Female

DRUGS (9)
  1. REBETOL [Suspect]
     Indication: HEPATITIS C
     Dosage: 800 MG, QD
     Route: 048
     Dates: start: 20110819
  2. VICTRELIS [Suspect]
     Indication: HEPATITIS C
     Dosage: 800 MG, TID
     Dates: start: 20110916
  3. VICTRELIS [Suspect]
     Dosage: 4 DF, TID
  4. VICTRELIS [Suspect]
     Dosage: 40 MG, TID
     Route: 048
  5. VICTRELIS [Suspect]
     Dosage: UNK, TID
     Dates: start: 20110819
  6. PEGINTERFERON ALFA-2A [Suspect]
     Indication: HEPATITIS C
     Dosage: 180 MICROGRAM, QW
     Route: 058
     Dates: start: 20110819, end: 20120418
  7. XANAX [Concomitant]
  8. DIURETIC (UNSPECIFIED) [Concomitant]
  9. ATARAX (HYDROXYZINE HYDROCHLORIDE) [Concomitant]

REACTIONS (12)
  - Candida infection [Not Recovered/Not Resolved]
  - Depression [Unknown]
  - Suicidal ideation [Unknown]
  - Pruritus [Unknown]
  - Insomnia [Unknown]
  - Nausea [Unknown]
  - Headache [Unknown]
  - Decreased appetite [Unknown]
  - Eating disorder [Unknown]
  - Pyrexia [Unknown]
  - Weight decreased [Unknown]
  - Pneumonia [Unknown]
